FAERS Safety Report 6885584-6 (Version None)
Quarter: 2010Q3

REPORT INFORMATION
  Report Type: 
  Country: None (occurrence: None)
  Receive Date: 20100729
  Receipt Date: 20080502
  Transmission Date: 20110219
  Serious: Yes (Other)
  Sender: FDA-Public Use
  Company Number: US-PFIZER INC-2008020647

PATIENT
  Sex: Male

DRUGS (4)
  1. CELEBREX [Suspect]
  2. ULTRAM [Concomitant]
  3. ZOCOR [Concomitant]
  4. ZOVIRAX [Concomitant]

REACTIONS (1)
  - TRANSIENT ISCHAEMIC ATTACK [None]
